FAERS Safety Report 13064837 (Version 2)
Quarter: 2017Q1

REPORT INFORMATION
  Report Type: Spontaneous
  Country: US (occurrence: US)
  Receive Date: 20161227
  Receipt Date: 20170215
  Transmission Date: 20170428
  Serious: Yes (Death, Disabling)
  Sender: FDA-Public Use
  Company Number: US-CELGENEUS-USA-2016126172

PATIENT
  Age: 73 Year
  Sex: Male

DRUGS (1)
  1. REVLIMID [Suspect]
     Active Substance: LENALIDOMIDE
     Indication: PLASMA CELL MYELOMA
     Dosage: 15 MILLIGRAM
     Route: 048
     Dates: start: 20161104, end: 20161216

REACTIONS (2)
  - Death [Fatal]
  - Plasma cell myeloma [Not Recovered/Not Resolved]

NARRATIVE: CASE EVENT DATE: 20161118
